FAERS Safety Report 8435049-5 (Version None)
Quarter: 2012Q2

REPORT INFORMATION
  Report Type: 
  Country: None (occurrence: None)
  Receive Date: 20120614
  Receipt Date: 20120531
  Transmission Date: 20120825
  Serious: Yes (Life-Threatening, Hospitalization)
  Sender: FDA-Public Use
  Company Number: DE-MYLANLABS-2012S1011074

PATIENT
  Age: 64 Year
  Sex: Male
  Weight: 100 kg

DRUGS (8)
  1. CLOPIDOGREL [Suspect]
     Indication: PRODUCT USED FOR UNKNOWN INDICATION
     Route: 048
     Dates: start: 20111101
  2. EFFIENT [Interacting]
     Indication: STENT PLACEMENT
     Route: 048
     Dates: start: 20111021, end: 20111101
  3. ACETYLSALICYLIC ACID SRT [Interacting]
     Indication: CORONARY ARTERY DISEASE
     Route: 048
     Dates: start: 20050801
  4. ENALAPRIL MALEATE [Concomitant]
     Indication: CORONARY ARTERY DISEASE
     Dates: start: 20050801
  5. BISOPROLOL FUMARATE [Concomitant]
     Indication: CORONARY ARTERY DISEASE
     Dates: start: 20050801
  6. METFORMIN HCL [Concomitant]
     Indication: DIABETES MELLITUS
     Dates: start: 20040601
  7. SIMVASTATIN [Concomitant]
     Indication: CORONARY ARTERY DISEASE
     Dates: start: 20050801
  8. INSPRA [Concomitant]
     Indication: CARDIAC FAILURE
     Dates: start: 20111021

REACTIONS (5)
  - HAEMORRHAGE [None]
  - HAEMOGLOBIN DECREASED [None]
  - DRUG INTERACTION [None]
  - PAIN [None]
  - HYPOTENSION [None]
